FAERS Safety Report 10736250 (Version 1)
Quarter: 2015Q1

REPORT INFORMATION
  Report Type: Spontaneous
  Country: ES (occurrence: ES)
  Receive Date: 20150126
  Receipt Date: 20150126
  Transmission Date: 20150721
  Serious: Yes (Other)
  Sender: FDA-Public Use
  Company Number: ES-BAYER-2015-011009

PATIENT
  Age: 29 Year
  Sex: Male

DRUGS (4)
  1. MIBG-I 123 [Concomitant]
     Indication: CATECHOLAMINES URINE INCREASED
     Dosage: 200 MCI, UNK
     Route: 042
  2. CYCLOPHOSPHAMIDE. [Suspect]
     Active Substance: CYCLOPHOSPHAMIDE
     Indication: PARAGANGLION NEOPLASM
     Dosage: UNK UNK, Q3WK, 2 CYCLES
  3. VINCRISTINE [Suspect]
     Active Substance: VINCRISTINE
     Indication: PARAGANGLION NEOPLASM
     Dosage: UNK UNK, Q3WK, 2 CYCLES
  4. DACARBAZINE. [Suspect]
     Active Substance: DACARBAZINE
     Indication: PARAGANGLION NEOPLASM
     Dosage: UNK UNK, Q3WK, 2 CYCLES

REACTIONS (7)
  - Hypertension [None]
  - Hepatocellular injury [None]
  - Anaemia [None]
  - Systolic dysfunction [None]
  - Neutropenia [None]
  - Product use issue [None]
  - Thrombocytopenia [None]
